FAERS Safety Report 7646920-6 (Version None)
Quarter: 2011Q3

REPORT INFORMATION
  Report Type: 
  Country: None (occurrence: None)
  Receive Date: 20110801
  Receipt Date: 20110720
  Transmission Date: 20111222
  Serious: Yes (Other)
  Sender: FDA-Public Use
  Company Number: US-SANOFI-AVENTIS-2011SA043891

PATIENT
  Age: 76 Year
  Sex: Female
  Weight: 89 kg

DRUGS (13)
  1. POTASSIUM CHLORIDE [Concomitant]
     Dates: start: 20080728, end: 20110614
  2. PROTONIX [Concomitant]
     Dates: start: 20101129
  3. ASPIRIN [Concomitant]
     Dates: start: 20040225, end: 20110614
  4. CARVEDILOL [Concomitant]
     Dates: start: 20051214
  5. DRONEDARONE HCL [Suspect]
     Indication: ATRIAL FIBRILLATION
     Route: 048
     Dates: start: 20101129, end: 20110518
  6. COUMADIN [Concomitant]
     Dosage: 28MG WEEKLY
     Dates: start: 20040223, end: 20110614
  7. VITAMIN D [Concomitant]
  8. TORSEMIDE [Concomitant]
     Dates: start: 20080808, end: 20110614
  9. ATORVASTATIN [Concomitant]
     Dates: start: 20020218
  10. NIASPAN [Concomitant]
     Dates: start: 20040531, end: 20110614
  11. TYLENOL-500 [Concomitant]
     Dates: start: 20010427
  12. AVAPRO [Concomitant]
     Dates: start: 20020218, end: 20110614
  13. PROZAC [Concomitant]
     Dates: start: 20020218

REACTIONS (1)
  - RENAL FAILURE ACUTE [None]
